FAERS Safety Report 7426647-6 (Version None)
Quarter: 2011Q2

REPORT INFORMATION
  Report Type: 
  Country: None (occurrence: None)
  Receive Date: 20110420
  Receipt Date: 20110413
  Transmission Date: 20111010
  Serious: Yes (Life-Threatening, Hospitalization, Other)
  Sender: FDA-Public Use
  Company Number: DE-TEVA-276475GER

PATIENT
  Age: 63 Year
  Sex: Female
  Weight: 70 kg

DRUGS (3)
  1. MCP-RATIOPHARM SF 10MG/2ML [Suspect]
     Dosage: 10 MILLIGRAM;
     Route: 042
     Dates: start: 20101001, end: 20101001
  2. FENTANYL JANSSEN-CILAG [Suspect]
     Dosage: 150 MICROGRAM;
     Route: 042
     Dates: start: 20101001, end: 20101001
  3. SUCCINYLCHOLIN 2 %  INRESA [Suspect]
     Dosage: 60 MILLIGRAM;
     Route: 042
     Dates: start: 20101001, end: 20101001

REACTIONS (2)
  - LONG QT SYNDROME [None]
  - TORSADE DE POINTES [None]
